FAERS Safety Report 16765012 (Version 2)
Quarter: 2019Q3

REPORT INFORMATION
  Report Type: Spontaneous
  Country: US (occurrence: US)
  Receive Date: 20190903
  Receipt Date: 20190916
  Transmission Date: 20191005
  Serious: No
  Sender: FDA-Public Use
  Company Number: US-SHIRE-US201928583

PATIENT
  Age: 52 Year
  Sex: Male
  Weight: 108.39 kg

DRUGS (6)
  1. DIOVAN [Concomitant]
     Active Substance: VALSARTAN
     Indication: HYPERTENSION
  2. ADVIL [IBUPROFEN] [Concomitant]
     Active Substance: IBUPROFEN
     Indication: PRODUCT USED FOR UNKNOWN INDICATION
  3. AMLODIPINE [Concomitant]
     Active Substance: AMLODIPINE BESYLATE
     Indication: PRODUCT USED FOR UNKNOWN INDICATION
  4. LIALDA [Suspect]
     Active Substance: MESALAMINE
     Indication: COLITIS ULCERATIVE
     Dosage: 1.2 GRAM, 2X/DAY:BID
     Route: 048
     Dates: start: 2004
  5. LIALDA [Suspect]
     Active Substance: MESALAMINE
     Dosage: 4.8 GRAM, 1X/DAY:QD
     Route: 048
  6. SINGULAIR [Concomitant]
     Active Substance: MONTELUKAST SODIUM
     Indication: HYPERSENSITIVITY

REACTIONS (3)
  - Drug interaction [Unknown]
  - Intentional product misuse [Recovered/Resolved]
  - Dysuria [Recovering/Resolving]

NARRATIVE: CASE EVENT DATE: 2004
